FAERS Safety Report 7103840-3 (Version None)
Quarter: 2010Q4

REPORT INFORMATION
  Report Type: 
  Country: None (occurrence: None)
  Receive Date: 20101115
  Receipt Date: 20101110
  Transmission Date: 20110411
  Serious: Yes (Hospitalization)
  Sender: FDA-Public Use
  Company Number: FR-PFIZER INC-2010119938

PATIENT
  Age: 75 Year
  Sex: Male
  Weight: 72 kg

DRUGS (3)
  1. TAHOR [Suspect]
     Indication: BLOOD CHOLESTEROL
     Dosage: 20 MG, 2X/DAY
     Dates: start: 20100401
  2. TAHOR [Suspect]
     Dosage: 20 MG
     Dates: start: 20100801
  3. RAMIPRIL [Concomitant]
     Dosage: UNK
     Route: 048

REACTIONS (6)
  - ABASIA [None]
  - BALANCE DISORDER [None]
  - CONFUSIONAL STATE [None]
  - DYSSTASIA [None]
  - MUSCULAR WEAKNESS [None]
  - PAIN IN EXTREMITY [None]
